FAERS Safety Report 16877598 (Version 1)
Quarter: 2019Q4

REPORT INFORMATION
  Report Type: Spontaneous
  Country: US (occurrence: US)
  Receive Date: 20191002
  Receipt Date: 20191002
  Transmission Date: 20200122
  Serious: Yes (Disabling)
  Sender: FDA-Public Use
  Company Number: None

PATIENT
  Age: 63 Year
  Sex: Female
  Weight: 67.5 kg

DRUGS (1)
  1. WELLBUTRIN SR [Suspect]
     Active Substance: BUPROPION HYDROCHLORIDE
     Indication: DEPRESSION
     Route: 048
     Dates: start: 20081011

REACTIONS (6)
  - Product odour abnormal [None]
  - Suspected counterfeit product [None]
  - Tremor [None]
  - Dry mouth [None]
  - Loss of personal independence in daily activities [None]
  - Product substitution issue [None]

NARRATIVE: CASE EVENT DATE: 20190201
